FAERS Safety Report 7401493-8 (Version None)
Quarter: 2011Q2

REPORT INFORMATION
  Report Type: 
  Country: None (occurrence: None)
  Receive Date: 20110408
  Receipt Date: 20110328
  Transmission Date: 20111010
  Serious: Yes (Other)
  Sender: FDA-Public Use
  Company Number: GB-RANBAXY-2011R1-43341

PATIENT
  Age: 95 Year
  Sex: Male

DRUGS (8)
  1. LYRICA [Suspect]
     Indication: PRODUCT USED FOR UNKNOWN INDICATION
     Dosage: 25 MG, QD
     Route: 065
     Dates: start: 20110201
  2. LYRICA [Suspect]
     Dosage: 25 MG, QD
     Route: 065
     Dates: start: 20110219
  3. ACETAMINOPHEN [Concomitant]
     Indication: PAIN
     Dosage: 4 G, QD
     Route: 065
     Dates: start: 20070116
  4. LISINOPRIL [Suspect]
     Indication: HYPERTENSION
     Dosage: 2.5 MG, QD
     Route: 048
     Dates: start: 20060522, end: 20060618
  5. LISINOPRIL [Suspect]
     Dosage: 5 MG, QD
     Route: 048
     Dates: start: 20060619
  6. AMITRIPTYLINE HYDROCHLORIDE [Concomitant]
     Indication: DEPRESSION
     Dosage: 10 MG, QD
     Route: 065
     Dates: start: 20110214, end: 20110215
  7. FENTANYL [Concomitant]
     Indication: PAIN
     Dosage: UNK,UNK
     Route: 061
     Dates: start: 20110308
  8. OMEPRAZOLE [Concomitant]
     Indication: GASTROOESOPHAGEAL REFLUX DISEASE
     Dosage: 20 MG, QD
     Route: 065
     Dates: start: 20100308

REACTIONS (4)
  - DEPRESSION [None]
  - SYNCOPE [None]
  - FALL [None]
  - HALLUCINATION [None]
